FAERS Safety Report 4396118-2 (Version None)
Quarter: 2004Q3

REPORT INFORMATION
  Report Type: 
  Country: None (occurrence: None)
  Receive Date: 20040709
  Receipt Date: 20040625
  Transmission Date: 20050211
  Serious: Yes (Hospitalization)
  Sender: FDA-Public Use
  Company Number: 198405

PATIENT
  Age: 50 Year
  Sex: Female

DRUGS (6)
  1. AVONEX [Suspect]
     Indication: MULTIPLE SCLEROSIS
     Dosage: 30 MCG QW IM
     Dates: start: 19960101
  2. AVONEX [Suspect]
     Indication: MULTIPLE SCLEROSIS
     Dates: start: 20040101, end: 20040501
  3. COUMADIN [Concomitant]
  4. TOPROL-XL [Concomitant]
  5. DIGOXIN [Concomitant]
  6. PROVIGIL [Concomitant]

REACTIONS (7)
  - ARRHYTHMIA [None]
  - CARDIAC OPERATION [None]
  - CARDIOMEGALY [None]
  - CHILLS [None]
  - DIFFICULTY IN WALKING [None]
  - HYPERHIDROSIS [None]
  - MOBILITY DECREASED [None]
